FAERS Safety Report 12273071 (Version 1)
Quarter: 2016Q2

REPORT INFORMATION
  Report Type: Spontaneous
  Country: US (occurrence: US)
  Receive Date: 20160415
  Receipt Date: 20160415
  Transmission Date: 20160815
  Serious: No
  Sender: FDA-Public Use
  Company Number: US-ROCHE-1193370

PATIENT
  Sex: Male

DRUGS (4)
  1. RIBASPHERE RIBAPAK [Suspect]
     Active Substance: RIBAVIRIN
     Indication: HEPATITIS C
     Route: 048
     Dates: start: 20130204
  2. PEGASYS [Suspect]
     Active Substance: PEGINTERFERON ALFA-2A
     Indication: HEPATITIS C
     Route: 065
     Dates: start: 20130204, end: 20130218
  3. PEGASYS [Suspect]
     Active Substance: PEGINTERFERON ALFA-2A
     Route: 065
     Dates: start: 2002
  4. TELAPREVIR [Suspect]
     Active Substance: TELAPREVIR
     Indication: HEPATITIS C
     Route: 065
     Dates: start: 2013

REACTIONS (10)
  - Poor quality drug administered [Unknown]
  - Underdose [Unknown]
  - Arthralgia [Not Recovered/Not Resolved]
  - Visual impairment [Unknown]
  - Arthralgia [Unknown]
  - Accidental exposure to product [Unknown]
  - Injection site bruising [Unknown]
  - Product label issue [Unknown]
  - No therapeutic response [Unknown]
  - Decreased appetite [Unknown]
